FAERS Safety Report 12988464 (Version 1)
Quarter: 2016Q4

REPORT INFORMATION
  Report Type: Spontaneous
  Country: US (occurrence: US)
  Receive Date: 20161130
  Receipt Date: 20161130
  Transmission Date: 20170207
  Serious: Yes (Other)
  Sender: FDA-Public Use
  Company Number: US-ASTRAZENECA-2016SF25507

PATIENT
  Age: 30441 Day
  Sex: Female
  Weight: 52.2 kg

DRUGS (1)
  1. BRILINTA [Suspect]
     Active Substance: TICAGRELOR
     Indication: STENT PLACEMENT
     Route: 048
     Dates: start: 201608

REACTIONS (7)
  - Weight decreased [Unknown]
  - Cardiac disorder [Unknown]
  - Cardiac failure congestive [Unknown]
  - Flatulence [Unknown]
  - Myocardial infarction [Unknown]
  - Angina pectoris [Unknown]
  - Pain [Unknown]

NARRATIVE: CASE EVENT DATE: 20160813
